FAERS Safety Report 8019743-6 (Version None)
Quarter: 2012Q1

REPORT INFORMATION
  Report Type: 
  Country: None (occurrence: None)
  Receive Date: 20120103
  Receipt Date: 20111221
  Transmission Date: 20120608
  Serious: Yes (Other)
  Sender: FDA-Public Use
  Company Number: GB-GLAXOSMITHKLINE-B0770955A

PATIENT
  Sex: Female

DRUGS (1)
  1. VENTOLIN [Suspect]
     Indication: ASTHMA
     Route: 065
     Dates: start: 20110201

REACTIONS (6)
  - CHEST PAIN [None]
  - DIZZINESS [None]
  - MUSCULAR WEAKNESS [None]
  - THROAT IRRITATION [None]
  - ASTHMA [None]
  - PALPITATIONS [None]
